FAERS Safety Report 12254616 (Version 2)
Quarter: 2016Q3

REPORT INFORMATION
  Report Type: Spontaneous
  Country: US (occurrence: US)
  Receive Date: 20160411
  Receipt Date: 20160801
  Transmission Date: 20161109
  Serious: Yes (Hospitalization)
  Sender: FDA-Public Use
  Company Number: US-ACTELION-A-US2016-133993

PATIENT
  Age: 33 Year
  Sex: Female

DRUGS (12)
  1. TORSEMIDE. [Concomitant]
     Active Substance: TORSEMIDE
  2. POTASSIUM [Concomitant]
     Active Substance: POTASSIUM
  3. DIGOXIN. [Concomitant]
     Active Substance: DIGOXIN
  4. SPIRONOLACTONE. [Concomitant]
     Active Substance: SPIRONOLACTONE
  5. BENADRYL [Concomitant]
     Active Substance: DIPHENHYDRAMINE HYDROCHLORIDE
  6. GABAPENTIN. [Concomitant]
     Active Substance: GABAPENTIN
  7. SEROQUEL [Concomitant]
     Active Substance: QUETIAPINE FUMARATE
  8. LEXAPRO [Concomitant]
     Active Substance: ESCITALOPRAM OXALATE
  9. REVATIO [Concomitant]
     Active Substance: SILDENAFIL CITRATE
  10. THIAMINE. [Concomitant]
     Active Substance: THIAMINE
  11. LEVOTHYROXINE. [Concomitant]
     Active Substance: LEVOTHYROXINE
  12. OPSUMIT [Suspect]
     Active Substance: MACITENTAN
     Indication: PULMONARY ARTERIAL HYPERTENSION
     Dosage: 10 MG, QD
     Route: 048
     Dates: start: 20151223

REACTIONS (3)
  - Abnormal behaviour [Unknown]
  - Swelling [Unknown]
  - Mental disorder [Unknown]

NARRATIVE: CASE EVENT DATE: 20160309
